FAERS Safety Report 5658179-X (Version None)
Quarter: 2008Q1

REPORT INFORMATION
  Report Type: 
  Country: None (occurrence: None)
  Receive Date: 20080310
  Receipt Date: 20070215
  Transmission Date: 20080703
  Serious: No
  Sender: FDA-Public Use
  Company Number: US-BAYER-200710071BCC

PATIENT
  Age: 47 Year
  Sex: Female
  Weight: 64 kg

DRUGS (5)
  1. ALEVE [Suspect]
     Indication: HEADACHE
     Dosage: TOTAL DAILY DOSE: 220 MG  UNIT DOSE: 220 MG
     Route: 048
     Dates: start: 20060106
  2. ALEVE [Suspect]
     Dosage: AS USED: 220 MG  UNIT DOSE: 220 MG
     Route: 048
  3. ALEVE [Suspect]
     Dosage: AS USED: 440 MG  UNIT DOSE: 220 MG
     Route: 048
  4. ASPIRIN [Suspect]
     Indication: HEADACHE
     Route: 048
     Dates: start: 20060106
  5. VITAMIN TAB [Concomitant]

REACTIONS (1)
  - SOMNOLENCE [None]
